FAERS Safety Report 20814785 (Version 1)
Quarter: 2022Q2

REPORT INFORMATION
  Report Type: Spontaneous
  Country: MX (occurrence: MX)
  Receive Date: 20220511
  Receipt Date: 20220511
  Transmission Date: 20220720
  Serious: Yes (Hospitalization, Other)
  Sender: FDA-Public Use
  Company Number: MX-AMGEN-MEXSP2022078723

PATIENT
  Age: 6 Year
  Sex: Female

DRUGS (12)
  1. FILGRASTIM [Suspect]
     Active Substance: FILGRASTIM
     Indication: Autologous haematopoietic stem cell transplant
     Dosage: 10 MEG/KG/DAY ON DAYS -9 TO -5.
     Route: 065
  2. FILGRASTIM [Suspect]
     Active Substance: FILGRASTIM
     Indication: Off label use
  3. CYCLOPHOSPHAMIDE [Concomitant]
     Active Substance: CYCLOPHOSPHAMIDE
     Dosage: 1.5 GRAM PER SQUARE METRE
  4. MESNA [Concomitant]
     Active Substance: MESNA
     Dosage: 500 MILLIGRAM/SQ. METER, ON DAYS-11 AND -10
  5. FLUDARABINE [Concomitant]
     Active Substance: FLUDARABINE PHOSPHATE
     Dosage: 30 MILLIGRAM/SQ. METER, ON DAYS -4, -3, -2, -1
  6. CIPROFLOXACIN [Concomitant]
     Active Substance: CIPROFLOXACIN
     Indication: Prophylaxis
     Dosage: 500 MILLIGRAM, TWICE A DAY
  7. FLUCONAZOLE [Concomitant]
     Active Substance: FLUCONAZOLE
     Indication: Prophylaxis
     Dosage: 100 MILLIGRAM, EVERY DAY
  8. ACYCLOVIR [Concomitant]
     Active Substance: ACYCLOVIR
     Indication: Prophylaxis
     Dosage: 400 MILLIGRAM, TWICE A DAY
  9. METHOTREXATE [Concomitant]
     Active Substance: METHOTREXATE
  10. TOCILIZUMAB [Concomitant]
     Active Substance: TOCILIZUMAB
  11. HYDROXYCHLOROQUINE [Concomitant]
     Active Substance: HYDROXYCHLOROQUINE
  12. PREDNISONE [Concomitant]
     Active Substance: PREDNISONE

REACTIONS (3)
  - Febrile neutropenia [Unknown]
  - Juvenile idiopathic arthritis [Recovered/Resolved]
  - Off label use [Unknown]
